FAERS Safety Report 5936217-4 (Version None)
Quarter: 2008Q4

REPORT INFORMATION
  Report Type: 
  Country: None (occurrence: None)
  Receive Date: 20081030
  Receipt Date: 20070920
  Transmission Date: 20090506
  Serious: No
  Sender: FDA-Public Use
  Company Number: A0683346A

PATIENT
  Age: 84 Year
  Sex: Male

DRUGS (3)
  1. SEREVENT [Suspect]
     Indication: CHRONIC OBSTRUCTIVE PULMONARY DISEASE
     Dosage: 50MCG TWICE PER DAY
     Route: 055
     Dates: start: 20070917
  2. QVAR 40 [Concomitant]
  3. CONCURRENT MEDICATIONS [Concomitant]

REACTIONS (1)
  - COUGH [None]
